FAERS Safety Report 25037364 (Version 1)
Quarter: 2025Q1

REPORT INFORMATION
  Report Type: Spontaneous
  Country: CA (occurrence: CA)
  Receive Date: 20250304
  Receipt Date: 20250304
  Transmission Date: 20250409
  Serious: Yes (Hospitalization)
  Sender: WAYLIS THERAPEUTICS
  Company Number: CA-WOODWARD-2024-CA-002354

PATIENT
  Age: 61 Year
  Sex: Female

DRUGS (19)
  1. RABEPRAZOLE SODIUM [Suspect]
     Active Substance: RABEPRAZOLE SODIUM
     Indication: Product used for unknown indication
     Route: 048
  2. MELOXICAM [Suspect]
     Active Substance: MELOXICAM
  3. METHYLPREDNISOLONE ACETATE [Suspect]
     Active Substance: METHYLPREDNISOLONE ACETATE
  4. ORENCIA [Suspect]
     Active Substance: ABATACEPT
  5. SIMPONI [Suspect]
     Active Substance: GOLIMUMAB
     Route: 058
  6. SULFASALAZINE [Suspect]
     Active Substance: SULFASALAZINE
  7. TYLENOL [Suspect]
     Active Substance: ACETAMINOPHEN
     Route: 048
  8. XELJANZ [Suspect]
     Active Substance: TOFACITINIB CITRATE
     Route: 048
  9. UPADACITINIB [Suspect]
     Active Substance: UPADACITINIB
  10. CIMZIA [Suspect]
     Active Substance: CERTOLIZUMAB PEGOL
  11. RINVOQ [Suspect]
     Active Substance: UPADACITINIB
     Route: 048
  12. ACTEMRA [Suspect]
     Active Substance: TOCILIZUMAB
  13. BARICITINIB [Suspect]
     Active Substance: BARICITINIB
  14. CANDESARTAN [Suspect]
     Active Substance: CANDESARTAN
  15. CELEBREX [Suspect]
     Active Substance: CELECOXIB
  16. DESOXIMETASONE [Suspect]
     Active Substance: DESOXIMETASONE
  17. DYMISTA [Suspect]
     Active Substance: AZELASTINE HYDROCHLORIDE\FLUTICASONE PROPIONATE
  18. ERELZI [Suspect]
     Active Substance: ETANERCEPT-SZZS
  19. XIIDRA [Suspect]
     Active Substance: LIFITEGRAST

REACTIONS (6)
  - Arthritis [Unknown]
  - Blood folate decreased [Unknown]
  - Drug ineffective [Unknown]
  - Platelet count decreased [Unknown]
  - Pneumonia [Unknown]
  - White blood cell count decreased [Unknown]
